FAERS Safety Report 21113589 (Version 1)
Quarter: 2022Q3

REPORT INFORMATION
  Report Type: Report from Study
  Country: US (occurrence: US)
  Receive Date: 20220721
  Receipt Date: 20220721
  Transmission Date: 20221026
  Serious: Yes (Hospitalization, Other)
  Sender: FDA-Public Use
  Company Number: US-NOVARTISPH-NVSC2022US162005

PATIENT
  Age: 72 Year
  Sex: Male
  Weight: 78.5 kg

DRUGS (11)
  1. BUMETANIDE [Suspect]
     Active Substance: BUMETANIDE
     Indication: Cardiac failure
     Dosage: 7 MG, QD (QAM)
     Route: 048
  2. BUMETANIDE [Suspect]
     Active Substance: BUMETANIDE
     Indication: Fluid retention
     Dosage: 6 MG, QD (QPM)
     Route: 048
     Dates: end: 20190426
  3. TAFAMIDIS MEGLUMINE [Suspect]
     Active Substance: TAFAMIDIS MEGLUMINE
     Indication: Cardiac amyloidosis
     Dosage: 61 MG, QD
     Route: 048
     Dates: start: 20160624
  4. EPLERENONE [Concomitant]
     Active Substance: EPLERENONE
     Indication: Cardiac failure
     Dosage: UNK
     Route: 065
     Dates: start: 20170210
  5. EPLERENONE [Concomitant]
     Active Substance: EPLERENONE
     Indication: Fluid retention
  6. HYDROCHLOROTHIAZIDE [Concomitant]
     Active Substance: HYDROCHLOROTHIAZIDE
     Indication: Cardiac failure
     Dosage: UNK
     Route: 065
     Dates: start: 20171213, end: 20190426
  7. HYDROCHLOROTHIAZIDE [Concomitant]
     Active Substance: HYDROCHLOROTHIAZIDE
     Indication: Fluid retention
  8. LEVOTHYROXINE [Concomitant]
     Active Substance: LEVOTHYROXINE
     Indication: Hypothyroidism
     Dosage: UNK
     Route: 065
     Dates: start: 20140301
  9. POTASSIUM CHLORIDE [Concomitant]
     Active Substance: POTASSIUM CHLORIDE
     Indication: Mineral supplementation
     Dosage: UNK
     Route: 065
     Dates: start: 20190219, end: 20190426
  10. RIVAROXABAN [Concomitant]
     Active Substance: RIVAROXABAN
     Indication: Atrial fibrillation
     Dosage: UNK
     Route: 065
     Dates: start: 20180101
  11. TOLVAPTAN [Concomitant]
     Active Substance: TOLVAPTAN
     Indication: Hyponatraemia
     Dosage: UNK
     Route: 065

REACTIONS (8)
  - Acute kidney injury [Recovered/Resolved]
  - Urinary retention [Unknown]
  - Bradycardia [Recovering/Resolving]
  - Hypokalaemia [Recovered/Resolved]
  - Hyperkalaemia [Unknown]
  - Asthenia [Unknown]
  - Dyspnoea exertional [Unknown]
  - Hypotension [Unknown]

NARRATIVE: CASE EVENT DATE: 20190425
